FAERS Safety Report 16628989 (Version 2)
Quarter: 2020Q1

REPORT INFORMATION
  Report Type: Spontaneous
  Country: CA (occurrence: CA)
  Receive Date: 20190725
  Receipt Date: 20200107
  Transmission Date: 20200409
  Serious: Yes (Death, Hospitalization, Other)
  Sender: FDA-Public Use
  Company Number: CA-PFIZER INC-2019312226

PATIENT
  Age: 57 Year
  Sex: Male
  Weight: 85 kg

DRUGS (27)
  1. MAGNESIUM OXIDE. [Concomitant]
     Active Substance: MAGNESIUM OXIDE
     Dosage: UNK
  2. SENOKOT [Concomitant]
     Active Substance: SENNOSIDES
     Dosage: UNK, 1X/DAY IN THE MORNING
  3. TIAZAC [Concomitant]
     Active Substance: DILTIAZEM HYDROCHLORIDE
     Dosage: 180 MG, 1X/DAY
  4. INNOHEP [Suspect]
     Active Substance: TINZAPARIN SODIUM
     Dosage: UNK
     Dates: start: 20160406
  5. INNOHEP [Suspect]
     Active Substance: TINZAPARIN SODIUM
     Dosage: UNK
     Dates: start: 20160427
  6. INNOHEP [Suspect]
     Active Substance: TINZAPARIN SODIUM
     Dosage: 14000 IU, DAILY
     Route: 058
     Dates: start: 20160526
  7. SPIRIVA [Concomitant]
     Active Substance: TIOTROPIUM BROMIDE MONOHYDRATE
     Dosage: 18 UG, EVERY MORNING
  8. ZOPICLONE [Concomitant]
     Active Substance: ZOPICLONE
     Dosage: IN THE AFTERNOON
  9. INNOHEP [Suspect]
     Active Substance: TINZAPARIN SODIUM
     Dosage: 16000 IU, DAILY
     Route: 058
     Dates: start: 20160213
  10. HYDROMORPH CONTIN [Concomitant]
     Active Substance: HYDROMORPHONE
     Dosage: 12 MG, 1X/DAY
  11. PANTOPRAZOLE [Concomitant]
     Active Substance: PANTOPRAZOLE
     Dosage: 40 MG, 2X/DAY
  12. VITAMIN D3 [Concomitant]
     Active Substance: CHOLECALCIFEROL
     Dosage: 1000 IU, 1X/DAY
  13. INNOHEP [Suspect]
     Active Substance: TINZAPARIN SODIUM
     Dosage: UNK
     Dates: start: 20160427
  14. CANDESARTAN. [Concomitant]
     Active Substance: CANDESARTAN
     Dosage: UNK
  15. SALBUTAMOL [Concomitant]
     Active Substance: ALBUTEROL
     Dosage: IN THE AFTERNOON
  16. DILAUDID [Concomitant]
     Active Substance: HYDROMORPHONE HYDROCHLORIDE
     Dosage: 4 MG, EVERY 4H IN THE AFTERNOON
  17. LACTULOSE. [Concomitant]
     Active Substance: LACTULOSE
     Dosage: IN THE AFTERNOON
  18. LYRICA [Concomitant]
     Active Substance: PREGABALIN
     Indication: PAIN IN EXTREMITY
     Dosage: 50 MG, 3X/DAY
     Dates: end: 20160704
  19. INNOHEP [Suspect]
     Active Substance: TINZAPARIN SODIUM
     Dosage: 14000 IU, DAILY
     Route: 058
     Dates: start: 20160503, end: 20160510
  20. INNOHEP [Suspect]
     Active Substance: TINZAPARIN SODIUM
     Dosage: 18000 IU, DAILY
     Route: 058
     Dates: start: 20160716
  21. CEFUROXIME. [Concomitant]
     Active Substance: CEFUROXIME
     Dosage: 500 MG, 2X/DAY
     Dates: end: 20160705
  22. LYRICA [Concomitant]
     Active Substance: PREGABALIN
     Indication: PAIN IN EXTREMITY
  23. DALTEPARIN SODIUM [Suspect]
     Active Substance: DALTEPARIN SODIUM
     Indication: THROMBOSIS
     Dosage: 10000 IU, 2X/DAY
     Dates: start: 20160531
  24. ACETAMINOPHEN. [Concomitant]
     Active Substance: ACETAMINOPHEN
     Dosage: EVERY 4 HOURS IN THE AFTERNOON
  25. SYMBICORT [Concomitant]
     Active Substance: BUDESONIDE\FORMOTEROL FUMARATE DIHYDRATE
     Dosage: UNK, 2X/DAY
     Route: 055
  26. DEXPANTHENOL;ERGOCALCIFEROL;NICOTINAMIDE;PYRIDOXINE;RETINOL;RIBOFLAVIN [Concomitant]
     Active Substance: VITAMINS
     Dosage: 1 DF, DAILY
  27. INNOHEP [Suspect]
     Active Substance: TINZAPARIN SODIUM
     Indication: TUMOUR THROMBOSIS
     Dosage: 18000 IU, DAILY
     Route: 058
     Dates: start: 20160104

REACTIONS (3)
  - Drug ineffective [Unknown]
  - Pulmonary embolism [Unknown]
  - Death [Fatal]

NARRATIVE: CASE EVENT DATE: 20160615
